FAERS Safety Report 10023121 (Version 2)
Quarter: 2014Q2

REPORT INFORMATION
  Report Type: Report from Study
  Country: GB (occurrence: GB)
  Receive Date: 20140320
  Receipt Date: 20140519
  Transmission Date: 20141212
  Serious: Yes (Other)
  Sender: FDA-Public Use
  Company Number: GB-ROCHE-1363445

PATIENT
  Age: 68 Year
  Sex: Female

DRUGS (2)
  1. HERCEPTIN [Suspect]
     Indication: BREAST CANCER
     Route: 058
     Dates: start: 20131223, end: 20131223
  2. HERCEPTIN [Suspect]
     Route: 042

REACTIONS (1)
  - Discomfort [Recovered/Resolved]
